FAERS Safety Report 6764112-X (Version None)
Quarter: 2010Q2

REPORT INFORMATION
  Report Type: 
  Country: None (occurrence: None)
  Receive Date: 20100610
  Receipt Date: 20100601
  Transmission Date: 20101027
  Serious: Yes (Hospitalization, Disabling)
  Sender: FDA-Public Use
  Company Number: US-JNJFOC-20100407087

PATIENT
  Sex: Female
  Weight: 88.91 kg

DRUGS (6)
  1. STELARA [Suspect]
     Indication: PSORIASIS
     Route: 058
  2. STELARA [Suspect]
     Route: 058
  3. STELARA [Suspect]
     Route: 058
  4. MULTI-VITAMINS [Concomitant]
  5. BILBERRY EXTRACT [Concomitant]
  6. NSAIDS [Concomitant]
     Indication: ARTHRITIS

REACTIONS (3)
  - BLOOD GLUCOSE INCREASED [None]
  - BLOOD PRESSURE INCREASED [None]
  - ISCHAEMIC STROKE [None]
